FAERS Safety Report 5527165-2 (Version None)
Quarter: 2007Q4

REPORT INFORMATION
  Report Type: 
  Country: None (occurrence: None)
  Receive Date: 20071121
  Receipt Date: 20071107
  Transmission Date: 20080405
  Serious: Yes (Hospitalization)
  Sender: FDA-Public Use
  Company Number: TRP_01002_2007

PATIENT
  Sex: Female
  Weight: 72.5755 kg

DRUGS (4)
  1. RIBASPHERE [Suspect]
     Indication: HEPATITIS C
     Dosage: 1000 MG QD ORAL (1000 MG QD ORAL)
     Route: 048
     Dates: end: 20070101
  2. RIBASPHERE [Suspect]
     Indication: HEPATITIS C
     Dosage: 1000 MG QD ORAL (1000 MG QD ORAL)
     Route: 048
     Dates: start: 20071017, end: 20071026
  3. PEG-INTRON [Suspect]
     Indication: HEPATITIS C
     Dosage: 96 ?G 1X/WEEK SUBCUTANEOUS
     Route: 058
     Dates: end: 20070101
  4. PEG-INTRON [Suspect]
     Indication: HEPATITIS C
     Dosage: 96 ?G 1X/WEEK SUBCUTANEOUS
     Route: 058
     Dates: start: 20071017, end: 20071024

REACTIONS (22)
  - ALANINE AMINOTRANSFERASE INCREASED [None]
  - ARRHYTHMIA [None]
  - BLOOD BILIRUBIN INCREASED [None]
  - BLOOD CALCIUM DECREASED [None]
  - BLOOD CHLORIDE DECREASED [None]
  - BLOOD CREATINE PHOSPHOKINASE INCREASED [None]
  - BLOOD CREATININE DECREASED [None]
  - BLOOD GLUCOSE INCREASED [None]
  - BLOOD POTASSIUM DECREASED [None]
  - CARBON DIOXIDE DECREASED [None]
  - ELECTROCARDIOGRAM ST SEGMENT ABNORMAL [None]
  - GLUCOSE URINE PRESENT [None]
  - GRAND MAL CONVULSION [None]
  - HYPONATRAEMIA [None]
  - MUSCULOSKELETAL DISCOMFORT [None]
  - NEPHROLITHIASIS [None]
  - POSTICTAL STATE [None]
  - PROTEIN TOTAL INCREASED [None]
  - RENAL CYST [None]
  - URINE KETONE BODY PRESENT [None]
  - WATER INTOXICATION [None]
  - WHITE BLOOD CELL COUNT INCREASED [None]
